FAERS Safety Report 9832695 (Version 1)
Quarter: 2014Q1

REPORT INFORMATION
  Report Type: Spontaneous
  Country: US (occurrence: US)
  Receive Date: 20140121
  Receipt Date: 20140121
  Transmission Date: 20141002
  Serious: No
  Sender: FDA-Public Use
  Company Number: US-PFIZER INC-2014016098

PATIENT
  Age: 59 Year
  Sex: Female
  Weight: 86.17 kg

DRUGS (3)
  1. LYRICA [Suspect]
     Indication: TRIGEMINAL NEURALGIA
     Dosage: 50 MG, 3X/DAY
  2. LYRICA [Suspect]
     Dosage: 150 MG, 3X/DAY
  3. LYRICA [Suspect]
     Dosage: 450 MG (3 CAPSULES OF 150 MG), 3X/DAY

REACTIONS (4)
  - Off label use [Unknown]
  - Accidental overdose [Unknown]
  - Personality change [Unknown]
  - Lethargy [Unknown]
